FAERS Safety Report 16662566 (Version 1)
Quarter: 2019Q3

REPORT INFORMATION
  Report Type: Spontaneous
  Country: US (occurrence: US)
  Receive Date: 20190802
  Receipt Date: 20190802
  Transmission Date: 20191004
  Serious: Yes (Other)
  Sender: FDA-Public Use
  Company Number: None

PATIENT
  Age: 69 Year
  Sex: Female
  Weight: 37.19 kg

DRUGS (12)
  1. ALTACE 10MG [Concomitant]
  2. MEKTOVI [Suspect]
     Active Substance: BINIMETINIB
     Indication: MALIGNANT MELANOMA
     Route: 048
     Dates: start: 20181026
  3. ASPIRIN 81MG [Concomitant]
     Active Substance: ASPIRIN
  4. KEPRRA 1000MG [Concomitant]
  5. MULTI-VITAMIN [Concomitant]
     Active Substance: .ALPHA.-TOCOPHEROL ACETATE, DL-\ASCORBIC ACID\CYANOCOBALAMIN\FLUORIDE ION\FOLIC ACID\NIACIN\PYRIDOXINE\RIBOFLAVIN\THIAMINE\VITAMIN A\VITAMIN D
  6. ADVIL 200MG [Concomitant]
  7. FERROUS SULFATE 325MG [Concomitant]
     Active Substance: FERROUS SULFATE
  8. BRAFTOVI [Suspect]
     Active Substance: ENCORAFENIB
     Indication: MALIGNANT MELANOMA
     Route: 048
     Dates: start: 20181026
  9. DITROPAN XL 5MG [Concomitant]
  10. OMEPRAZOLE 20MG [Concomitant]
     Active Substance: OMEPRAZOLE
  11. HYDROCHLOROTHIAZIDE 25MG [Concomitant]
     Active Substance: HYDROCHLOROTHIAZIDE
  12. RAMIPRIL 5MG [Concomitant]
     Active Substance: RAMIPRIL

REACTIONS (3)
  - Therapy cessation [None]
  - Asthenia [None]
  - Fatigue [None]

NARRATIVE: CASE EVENT DATE: 20190719
